FAERS Safety Report 22660650 (Version 10)
Quarter: 2024Q1

REPORT INFORMATION
  Report Type: Spontaneous
  Country: JP (occurrence: JP)
  Receive Date: 20230630
  Receipt Date: 20240201
  Transmission Date: 20240410
  Serious: Yes (Other)
  Sender: FDA-Public Use
  Company Number: JP-ABBVIE-5311037

PATIENT
  Age: 60 Year
  Sex: Female

DRUGS (16)
  1. SKYRIZI [Suspect]
     Active Substance: RISANKIZUMAB-RZAA
     Indication: Crohn^s disease
     Route: 058
     Dates: start: 20230410, end: 20230605
  2. SKYRIZI [Suspect]
     Active Substance: RISANKIZUMAB-RZAA
     Route: 058
     Dates: start: 20230801
  3. SKYRIZI [Suspect]
     Active Substance: RISANKIZUMAB-RZAA
     Indication: Crohn^s disease
     Dosage: TIME INTERVAL: TOTAL: FORM STRENGTH WAS 600 MG?WEEK 0
     Route: 042
     Dates: start: 20230410, end: 20230605
  4. SKYRIZI [Suspect]
     Active Substance: RISANKIZUMAB-RZAA
     Indication: Crohn^s disease
     Dosage: TIME INTERVAL: TOTAL: FORM STRENGTH WAS 600 MILLIGRAMS?WEEK 4
     Route: 042
     Dates: start: 202305, end: 202305
  5. SKYRIZI [Suspect]
     Active Substance: RISANKIZUMAB-RZAA
     Indication: Crohn^s disease
     Dosage: TIME INTERVAL: TOTAL: WEEK 8?FORM STRENGTH WAS 600 MILLIGRAMS
     Route: 042
     Dates: start: 20230605, end: 20230605
  6. ELDECALCITOL [Concomitant]
     Active Substance: ELDECALCITOL
     Indication: Osteoporosis
     Dosage: 0.75 MICROGRAM
  7. ENTECAVIR [Concomitant]
     Active Substance: ENTECAVIR
     Indication: Chronic hepatitis B
     Dosage: 0.5 MILLIGRAM
  8. ENTECAVIR [Concomitant]
     Active Substance: ENTECAVIR
     Indication: Chronic hepatitis B
     Dosage: FORM STRENGTH WAS 0.5 MILLIGRAMS?ENTECAVIR MONOHYDRATE
     Route: 065
  9. DIMETHICONE [Concomitant]
     Active Substance: DIMETHICONE
     Indication: Constipation
     Dosage: 240 MILLIGRAM
     Route: 048
  10. DIMETHICONE [Concomitant]
     Active Substance: DIMETHICONE
     Indication: Constipation
     Dosage: FORM STRENGTH WAS 80 MILLIGRAMS
     Route: 048
  11. FAMOTIDINE [Concomitant]
     Active Substance: FAMOTIDINE
     Indication: Gastric ulcer
     Dosage: 40 MILLIGRAM
     Route: 048
  12. FAMOTIDINE [Concomitant]
     Active Substance: FAMOTIDINE
     Indication: Gastric ulcer
     Dosage: FORM STRENGTH WAS 20 MILLIGRAMS
     Route: 048
  13. AMINO ACIDS\CARBOHYDRATES\MINERALS\SOYBEAN OIL\VITAMINS [Concomitant]
     Active Substance: AMINO ACIDS\CARBOHYDRATES\MINERALS\SOYBEAN OIL\VITAMINS
     Indication: Crohn^s disease
     Dosage: FORM STRENGTH: 240 GRAM
  14. MESALAMINE [Concomitant]
     Active Substance: MESALAMINE
     Indication: Crohn^s disease
     Dosage: FORM STRENGTH WAS 500 MILLIGRAMS
     Route: 065
  15. HERBALS [Concomitant]
     Active Substance: HERBALS
     Indication: Constipation
     Dosage: HERBAL MEDICINE ?FORM STRENGTH WAS 7.5 MILLIGRAMS
     Route: 065
  16. CANDESARTAN [Concomitant]
     Active Substance: CANDESARTAN
     Indication: Hypertension
     Dosage: CANDESARTAN CILEXETIL?FORM STRENGTH WAS 4 MILLIGRAMS

REACTIONS (1)
  - Interstitial lung disease [Recovering/Resolving]

NARRATIVE: CASE EVENT DATE: 20230623
